FAERS Safety Report 5441754-5 (Version None)
Quarter: 2007Q3

REPORT INFORMATION
  Report Type: 
  Country: None (occurrence: None)
  Receive Date: 20070829
  Receipt Date: 20070829
  Transmission Date: 20080115
  Serious: Yes (Hospitalization)
  Sender: FDA-Public Use
  Company Number: None

PATIENT
  Age: 81 Year
  Sex: Male

DRUGS (2)
  1. ACETAMINOPHEN [Suspect]
     Indication: PAIN
     Dosage: 325-500MG PO
     Route: 048
     Dates: start: 20070801
  2. ACETAMINOPHEN [Suspect]
     Indication: SLEEP DISORDER
     Dosage: 325-500MG PO
     Route: 048
     Dates: start: 20070801

REACTIONS (5)
  - CHOLELITHIASIS [None]
  - FAECES DISCOLOURED [None]
  - LIVER INJURY [None]
  - ORAL INTAKE REDUCED [None]
  - OVERDOSE [None]
